FAERS Safety Report 25190169 (Version 1)
Quarter: 2025Q2

REPORT INFORMATION
  Report Type: Spontaneous
  Country: SE (occurrence: SE)
  Receive Date: 20250411
  Receipt Date: 20250411
  Transmission Date: 20250717
  Serious: Yes (Disabling)
  Sender: LEO PHARM
  Company Number: None

PATIENT
  Age: 33 Year
  Sex: Female
  Weight: 69 kg

DRUGS (2)
  1. PROTOPIC [Suspect]
     Active Substance: TACROLIMUS
     Indication: Eczema
     Dates: start: 20241201, end: 20250101
  2. PROTOPIC [Suspect]
     Active Substance: TACROLIMUS
     Indication: Perioral dermatitis
     Dates: start: 20241201, end: 20250101

REACTIONS (5)
  - Product use issue [Unknown]
  - Withdrawal syndrome [Recovered/Resolved with Sequelae]
  - Perioral dermatitis [Recovered/Resolved with Sequelae]
  - Condition aggravated [Recovered/Resolved with Sequelae]
  - Oral herpes [Recovered/Resolved with Sequelae]

NARRATIVE: CASE EVENT DATE: 20250115
